FAERS Safety Report 16083764 (Version 1)
Quarter: 2019Q1

REPORT INFORMATION
  Report Type: Spontaneous
  Country: ES (occurrence: ES)
  Receive Date: 20190318
  Receipt Date: 20190318
  Transmission Date: 20190418
  Serious: Yes (Congenital Anomaly, Other)
  Sender: FDA-Public Use
  Company Number: ES-TEVA-2019-ES-1024147

PATIENT
  Age: 36 Year
  Sex: Female
  Weight: 83 kg

DRUGS (2)
  1. AMOXICILINA 750 MG COMPRIMIDO [Suspect]
     Active Substance: AMOXICILLIN
     Indication: TOOTHACHE
     Dosage: 2250 MILLIGRAM DAILY; 3 TAB PER DAY
     Route: 048
     Dates: start: 20190212, end: 20190214
  2. RHODOGIL [Concomitant]
     Active Substance: METRONIDAZOLE\SPIRAMYCIN
     Dosage: IT DOES NOT APPEAR IN THE ELECTRONIC CLINICAL RECORD OF PRIMARY CARE
     Route: 048
     Dates: start: 2019, end: 2019

REACTIONS (3)
  - Macroglossia [Recovering/Resolving]
  - Aphthous ulcer [Recovering/Resolving]
  - Paraesthesia [Recovering/Resolving]

NARRATIVE: CASE EVENT DATE: 201902
